FAERS Safety Report 16633975 (Version 6)
Quarter: 2019Q4

REPORT INFORMATION
  Report Type: Report from Study
  Country: JP (occurrence: JP)
  Receive Date: 20190725
  Receipt Date: 20191009
  Transmission Date: 20200122
  Serious: Yes (Hospitalization)
  Sender: FDA-Public Use
  Company Number: JP-TAKEDA-2019TJP016727AA

PATIENT
  Age: 72 Year
  Sex: Male
  Weight: 50 kg

DRUGS (17)
  1. RIVOTRIL [Suspect]
     Active Substance: CLONAZEPAM
     Indication: MYOCLONUS
     Dosage: 0.5 MILLIGRAM, BID
     Route: 048
     Dates: start: 20190712, end: 20190716
  2. REVLIMID [Suspect]
     Active Substance: LENALIDOMIDE
     Indication: PLASMA CELL MYELOMA
     Dosage: 10 MILLIGRAM, QD
     Route: 048
     Dates: start: 20190531, end: 20190711
  3. LENADEX [Suspect]
     Active Substance: DEXAMETHASONE ACETATE
     Indication: PLASMA CELL MYELOMA
     Dosage: 20 MILLIGRAM, 1/WEEK
     Route: 048
     Dates: start: 20190531, end: 20190719
  4. CARBAMAZEPINE. [Concomitant]
     Active Substance: CARBAMAZEPINE
     Indication: BIPOLAR DISORDER
     Dosage: 100 MILLIGRAM, BID
     Route: 048
  5. ROZEREM [Concomitant]
     Active Substance: RAMELTEON
     Indication: INSOMNIA
     Dosage: 8 MILLIGRAM, QD
     Route: 048
     Dates: start: 20190110
  6. TENOFOVIR ALAFENAMIDE FUMARATE [Concomitant]
     Active Substance: TENOFOVIR ALAFENAMIDE FUMARATE
     Indication: HEPATITIS B
     Dosage: 25 MILLIGRAM, QD
     Route: 048
     Dates: start: 20190226
  7. OXYCODONE                          /00045603/ [Suspect]
     Active Substance: OXYCODONE
     Indication: PLASMA CELL MYELOMA
     Dosage: 80 MILLIGRAM, BID
     Route: 048
     Dates: start: 20190312, end: 20190716
  8. IXAZOMIB [Suspect]
     Active Substance: IXAZOMIB
     Indication: PLASMA CELL MYELOMA
     Dosage: 3 MILLIGRAM, 1/WEEK
     Route: 048
     Dates: start: 20190531, end: 20190705
  9. LITHIUM CARBONATE. [Concomitant]
     Active Substance: LITHIUM CARBONATE
     Indication: BIPOLAR DISORDER
     Dosage: 100 MILLIGRAM, BID
     Route: 048
  10. NALDEMEDINE TOSILATE [Concomitant]
     Active Substance: NALDEMEDINE TOSYLATE
     Indication: CONSTIPATION
     Dosage: 0.2 MILLIGRAM, QD
     Route: 048
     Dates: start: 20181004, end: 20190716
  11. SODIUM PICOSULFATE [Concomitant]
     Active Substance: SODIUM PICOSULFATE
     Indication: CONSTIPATION
     Dosage: 15 DOSAGE FORM, QD
     Route: 048
     Dates: start: 20180928
  12. NIFEDIPINE. [Concomitant]
     Active Substance: NIFEDIPINE
     Indication: HYPERTENSION
     Dosage: 40 MILLIGRAM, QD
     Route: 048
     Dates: start: 20181121
  13. CILOSTAZOL. [Concomitant]
     Active Substance: CILOSTAZOL
     Indication: TRANSIENT ISCHAEMIC ATTACK
     Dosage: 50 MILLIGRAM, QD
     Route: 048
  14. EBRANTIL                           /00631801/ [Concomitant]
     Active Substance: URAPIDIL
     Indication: NEUROGENIC BLADDER
     Dosage: 15 MILLIGRAM, QD
     Route: 048
     Dates: start: 20180930
  15. CALONAL [Concomitant]
     Active Substance: ACETAMINOPHEN
     Indication: PLASMA CELL MYELOMA
     Dosage: 400 MILLIGRAM, TID
     Route: 048
     Dates: start: 20180920
  16. RISPERIDONE. [Concomitant]
     Active Substance: RISPERIDONE
     Indication: INSOMNIA
     Dosage: 0.5 MILLIGRAM, QD
     Route: 048
     Dates: start: 20190124
  17. OLMESARTAN MEDOXOMIL. [Concomitant]
     Active Substance: OLMESARTAN MEDOXOMIL
     Indication: HYPERTENSION
     Dosage: 20 MILLIGRAM, QD
     Route: 048
     Dates: start: 20190208

REACTIONS (3)
  - Anaemia [Recovered/Resolved]
  - Platelet count decreased [Recovered/Resolved]
  - Somnolence [Recovered/Resolved]

NARRATIVE: CASE EVENT DATE: 20190711
